FAERS Safety Report 14858398 (Version 1)
Quarter: 2018Q2

REPORT INFORMATION
  Report Type: Spontaneous
  Country: FR (occurrence: FR)
  Receive Date: 20180508
  Receipt Date: 20180508
  Transmission Date: 20180711
  Serious: Yes (Life-Threatening, Hospitalization)
  Sender: FDA-Public Use
  Company Number: FR-SUN PHARMACEUTICAL INDUSTRIES LTD-2018RR-172036

PATIENT
  Age: 33 Year
  Sex: Female
  Weight: 69 kg

DRUGS (5)
  1. IBUPROFENE [Suspect]
     Active Substance: IBUPROFEN
     Indication: SUICIDE ATTEMPT
     Dosage: 6000 MG, IN TOTAL
     Route: 048
     Dates: start: 20180211, end: 20180211
  2. CODEINE [Suspect]
     Active Substance: CODEINE
     Indication: SUICIDE ATTEMPT
     Dosage: 80 MG, UNK
     Route: 048
     Dates: start: 20180211, end: 20180211
  3. ALPRAZOLAM. [Suspect]
     Active Substance: ALPRAZOLAM
     Indication: SUICIDE ATTEMPT
     Dosage: 7.5 MG, UNK
     Route: 048
     Dates: start: 20180211, end: 20180211
  4. PARACETAMOL [Suspect]
     Active Substance: ACETAMINOPHEN
     Indication: SUICIDE ATTEMPT
     Dosage: 24 G
     Route: 048
     Dates: start: 20180211, end: 20180211
  5. DOMPERIDONE [Suspect]
     Active Substance: DOMPERIDONE
     Indication: SUICIDE ATTEMPT
     Dosage: 200 MG, UNK
     Route: 048
     Dates: start: 20180211, end: 20180211

REACTIONS (3)
  - Miosis [Recovered/Resolved]
  - Hypotension [Recovered/Resolved]
  - Coma [Recovered/Resolved]

NARRATIVE: CASE EVENT DATE: 20180211
